FAERS Safety Report 7101264-6 (Version None)
Quarter: 2010Q4

REPORT INFORMATION
  Report Type: 
  Country: None (occurrence: None)
  Receive Date: 20101115
  Receipt Date: 20100201
  Transmission Date: 20110411
  Serious: No
  Sender: FDA-Public Use
  Company Number: US-PFIZER INC-2010014732

PATIENT
  Sex: Female
  Weight: 81.6 kg

DRUGS (3)
  1. CLEOCIN [Suspect]
     Indication: SKIN DISORDER
     Dosage: UNK
     Route: 061
  2. CLEOCIN [Suspect]
     Dosage: FREQUENCY: 2X/DAY,
     Route: 061
  3. CLINDAMYCIN [Suspect]
     Indication: SKIN DISORDER
     Dosage: FREQUENCY: 2X/DAY,
     Route: 061

REACTIONS (2)
  - DRUG ADMINISTRATION ERROR [None]
  - DRUG INEFFECTIVE [None]
